FAERS Safety Report 4547382-8 (Version None)
Quarter: 2005Q1

REPORT INFORMATION
  Report Type: 
  Country: None (occurrence: None)
  Receive Date: 20050107
  Receipt Date: 20041011
  Transmission Date: 20050727
  Serious: Yes (Other)
  Sender: FDA-Public Use
  Company Number: DE-ROCHE-382956

PATIENT
  Age: 37 Year
  Sex: Female
  Weight: 55 kg

DRUGS (1)
  1. ROACCUTAN [Suspect]
     Route: 048
     Dates: start: 20040415

REACTIONS (2)
  - ALCOHOL USE [None]
  - PORPHYRIA NON-ACUTE [None]
